FAERS Safety Report 22103978 (Version 1)
Quarter: 2023Q1

REPORT INFORMATION
  Report Type: Spontaneous
  Country: FR (occurrence: FR)
  Receive Date: 20230316
  Receipt Date: 20230316
  Transmission Date: 20230418
  Serious: Yes (Life-Threatening)
  Sender: FDA-Public Use
  Company Number: None

PATIENT
  Age: 68 Year
  Sex: Female
  Weight: 68.2 kg

DRUGS (23)
  1. LINEZOLID [Suspect]
     Active Substance: LINEZOLID
     Indication: Lung disorder
     Dosage: 1200 MG, 1X/DAY
     Route: 042
     Dates: start: 20230206, end: 20230213
  2. FUROSEMIDE [Suspect]
     Active Substance: FUROSEMIDE
     Indication: Hypernatraemia
     Dosage: 40 MG, 1X/DAY
     Route: 042
     Dates: start: 20230208, end: 20230214
  3. AMOXICILLIN [Suspect]
     Active Substance: AMOXICILLIN
     Dosage: 2 G, SINGLE
     Route: 042
     Dates: start: 20230213, end: 20230214
  4. IMIPENEM [Suspect]
     Active Substance: IMIPENEM
     Indication: Lung disorder
     Dosage: 2 G, 1X/DAY
     Route: 042
     Dates: start: 20230206, end: 20230212
  5. NEFOPAM HYDROCHLORIDE [Suspect]
     Active Substance: NEFOPAM HYDROCHLORIDE
     Indication: Pain
     Dosage: UNK
     Route: 042
     Dates: start: 20230212, end: 20230214
  6. PROBENECID [Suspect]
     Active Substance: PROBENECID
     Indication: Renal lithiasis prophylaxis
     Dosage: 4 G, SINGLE
     Route: 048
     Dates: start: 20230210, end: 20230210
  7. CILASTATIN SODIUM [Suspect]
     Active Substance: CILASTATIN SODIUM
     Indication: Lung disorder
     Dosage: 2 G, 1X/DAY
     Route: 042
     Dates: start: 20230206, end: 20230212
  8. CIDOFOVIR [Suspect]
     Active Substance: CIDOFOVIR
     Indication: Lung disorder
     Dosage: 750 MG, SINGLE
     Route: 042
     Dates: start: 20230210, end: 20230210
  9. ISAVUCONAZOLE [Concomitant]
     Active Substance: ISAVUCONAZOLE
     Dosage: UNK
  10. NOREPINEPHRINE [Concomitant]
     Active Substance: NOREPINEPHRINE
     Dosage: UNK
  11. ATOVAQUONE [Concomitant]
     Active Substance: ATOVAQUONE
     Dosage: UNK
  12. SUFENTANIL [Concomitant]
     Active Substance: SUFENTANIL
     Dosage: UNK
  13. MIDAZOLAM [Concomitant]
     Active Substance: MIDAZOLAM
     Dosage: UNK
  14. HYDROXYZINE HYDROCHLORIDE [Concomitant]
     Active Substance: HYDROXYZINE HYDROCHLORIDE
     Dosage: UNK
  15. URSODIOL [Concomitant]
     Active Substance: URSODIOL
     Dosage: UNK
  16. NICARDIPINE HYDROCHLORIDE [Concomitant]
     Active Substance: NICARDIPINE HYDROCHLORIDE
     Dosage: UNK
  17. FILGRASTIM [Concomitant]
     Active Substance: FILGRASTIM
     Dosage: UNK
  18. PANTOPRAZOLE [Concomitant]
     Active Substance: PANTOPRAZOLE
     Dosage: UNK
  19. CELLCEPT [Concomitant]
     Active Substance: MYCOPHENOLATE MOFETIL
     Dosage: UNK
  20. CISATRACURIUM [Concomitant]
     Active Substance: CISATRACURIUM
     Dosage: UNK
  21. URAPIDIL [Concomitant]
     Active Substance: URAPIDIL
     Dosage: UNK
  22. METHYLPREDNISOLONE [Concomitant]
     Active Substance: METHYLPREDNISOLONE
     Dosage: UNK
  23. VALACYCLOVIR HYDROCHLORIDE [Concomitant]
     Active Substance: VALACYCLOVIR HYDROCHLORIDE
     Dosage: UNK

REACTIONS (4)
  - Incorrect dosage administered [Unknown]
  - Product prescribing error [Unknown]
  - Device computer issue [Unknown]
  - Renal failure [Unknown]

NARRATIVE: CASE EVENT DATE: 20230214
